FAERS Safety Report 23949179 (Version 3)
Quarter: 2024Q3

REPORT INFORMATION
  Report Type: Report from Study
  Country: US (occurrence: US)
  Receive Date: 20240607
  Receipt Date: 20240920
  Transmission Date: 20241017
  Serious: No
  Sender: SANDOZ
  Company Number: US-SANDOZ-SDZ2024US051013

PATIENT
  Age: 6 Year
  Sex: Female

DRUGS (2)
  1. OMNITROPE [Suspect]
     Active Substance: SOMATROPIN
     Indication: Product used for unknown indication
     Dosage: 10 MG 2 DOSE EVERY N/A N/A
     Route: 030
     Dates: start: 20240221
  2. OMNITROPE [Suspect]
     Active Substance: SOMATROPIN
     Indication: Product used for unknown indication
     Dosage: 10 MG 2 DOSE EVERY N/A N/A
     Route: 030
     Dates: start: 20240221

REACTIONS (3)
  - Incorrect dose administered by device [Unknown]
  - Device breakage [Unknown]
  - Drug ineffective [Unknown]

NARRATIVE: CASE EVENT DATE: 20240514
